FAERS Safety Report 16890089 (Version 1)
Quarter: 2019Q4

REPORT INFORMATION
  Report Type: Spontaneous
  Country: US (occurrence: US)
  Receive Date: 20191007
  Receipt Date: 20191007
  Transmission Date: 20200122
  Serious: Yes (Hospitalization)
  Sender: FDA-Public Use
  Company Number: US-TARO PHARMACEUTICALS USA.,INC-2019SUN00510

PATIENT
  Age: 77 Year
  Sex: Male

DRUGS (2)
  1. WARFARIN [Suspect]
     Active Substance: WARFARIN
     Indication: ANTICOAGULANT THERAPY
     Dosage: UNK
     Route: 065
  2. WARFARIN [Suspect]
     Active Substance: WARFARIN
     Indication: CARDIAC VALVE FIBROELASTOMA

REACTIONS (5)
  - Shock [Recovering/Resolving]
  - Retroperitoneal haematoma [Unknown]
  - Mental status changes [Recovering/Resolving]
  - Respiratory failure [Recovering/Resolving]
  - Cerebrovascular accident [Unknown]
